FAERS Safety Report 10996086 (Version 2)
Quarter: 2015Q2

REPORT INFORMATION
  Report Type: Spontaneous
  Country: US (occurrence: US)
  Receive Date: 20150407
  Receipt Date: 20150423
  Transmission Date: 20150821
  Serious: Yes (Life-Threatening)
  Sender: FDA-Public Use
  Company Number: US-009507513-1504USA002581

PATIENT
  Age: 31 Year
  Sex: Female
  Weight: 59.41 kg

DRUGS (3)
  1. DULERA [Suspect]
     Active Substance: FORMOTEROL FUMARATE DIHYDRATE\MOMETASONE FUROATE
     Indication: ASTHMA PROPHYLAXIS
     Dosage: 5MCG PER ACUTATION, BID
     Route: 055
     Dates: start: 20140525, end: 20140529
  2. PROVENTIL [Concomitant]
     Active Substance: ALBUTEROL
  3. NASONEX [Concomitant]
     Active Substance: MOMETASONE FUROATE

REACTIONS (3)
  - Wheezing [Not Recovered/Not Resolved]
  - Dyspnoea [Not Recovered/Not Resolved]
  - Drug ineffective [Not Recovered/Not Resolved]

NARRATIVE: CASE EVENT DATE: 20140529
